FAERS Safety Report 8046245-3 (Version None)
Quarter: 2012Q1

REPORT INFORMATION
  Report Type: 
  Country: None (occurrence: None)
  Receive Date: 20120113
  Receipt Date: 20120104
  Transmission Date: 20120608
  Serious: Yes (Hospitalization)
  Sender: FDA-Public Use
  Company Number: US-ELI_LILLY_AND_COMPANY-US201111006851

PATIENT
  Sex: Female

DRUGS (4)
  1. FORTEO [Suspect]
     Indication: OSTEOPOROSIS
     Dosage: 600 UG, QD
     Route: 058
  2. PREDNISONE [Concomitant]
     Indication: RHEUMATOID ARTHRITIS
  3. REMICADE [Concomitant]
     Indication: RHEUMATOID ARTHRITIS
  4. METHOTREXATE [Concomitant]
     Indication: RHEUMATOID ARTHRITIS

REACTIONS (4)
  - CELLULITIS [None]
  - OVERDOSE [None]
  - LOCALISED INFECTION [None]
  - HOSPITALISATION [None]
